FAERS Safety Report 4279257-6 (Version None)
Quarter: 2004Q1

REPORT INFORMATION
  Report Type: 
  Country: None (occurrence: None)
  Receive Date: 20040126
  Receipt Date: 20040126
  Transmission Date: 20041129
  Serious: Yes (Other)
  Sender: FDA-Public Use
  Company Number: None

PATIENT
  Age: 33 Year
  Sex: Female
  Weight: 86.4 kg

DRUGS (5)
  1. AZITHROMYCIN [Suspect]
  2. CEFUROXIME AXETIL [Concomitant]
  3. LORATADINE [Concomitant]
  4. PAROXETINE HCL [Concomitant]
  5. AMOXICILLIN [Concomitant]

REACTIONS (1)
  - RASH [None]
